FAERS Safety Report 13904104 (Version 5)
Quarter: 2018Q2

REPORT INFORMATION
  Report Type: Spontaneous
  Country: JP (occurrence: JP)
  Receive Date: 20170825
  Receipt Date: 20180517
  Transmission Date: 20180711
  Serious: Yes (Other)
  Sender: FDA-Public Use
  Company Number: JP-ROCHE-1983146

PATIENT
  Age: 70 Year
  Sex: Male

DRUGS (8)
  1. XELODA [Suspect]
     Active Substance: CAPECITABINE
     Indication: TUMOUR THROMBOSIS
  2. XELODA [Suspect]
     Active Substance: CAPECITABINE
     Indication: METASTASES TO LIVER
  3. IRINOTECAN [Concomitant]
     Active Substance: IRINOTECAN
  4. OXALIPLATIN. [Suspect]
     Active Substance: OXALIPLATIN
     Indication: METASTASES TO LIVER
  5. GIMERACIL/OTERACIL POTASSIUM/TEGAFUR [Concomitant]
     Active Substance: GIMERACIL\OTERACIL\TEGAFUR
  6. XELODA [Suspect]
     Active Substance: CAPECITABINE
     Indication: COLON CANCER
     Route: 048
  7. OXALIPLATIN. [Suspect]
     Active Substance: OXALIPLATIN
     Indication: COLON CANCER
     Route: 041
  8. OXALIPLATIN. [Suspect]
     Active Substance: OXALIPLATIN
     Indication: TUMOUR THROMBOSIS

REACTIONS (3)
  - Peripheral sensory neuropathy [Unknown]
  - Peritonitis [Unknown]
  - Gastrointestinal perforation [Recovering/Resolving]
